FAERS Safety Report 4477357-9 (Version None)
Quarter: 2004Q4

REPORT INFORMATION
  Report Type: 
  Country: None (occurrence: None)
  Receive Date: 20041018
  Receipt Date: 20041007
  Transmission Date: 20050328
  Serious: Yes (Hospitalization)
  Sender: FDA-Public Use
  Company Number: BE-JNJFOC-20040903196

PATIENT
  Age: 40 Year
  Sex: Female

DRUGS (8)
  1. PROPULSID [Suspect]
     Route: 049
  2. PROPULSID [Suspect]
     Route: 049
  3. OMEPRAZOLE [Concomitant]
     Indication: GASTROOESOPHAGEAL REFLUX DISEASE
     Route: 049
  4. EFFEXOR [Concomitant]
     Route: 049
  5. TRAZOLAN [Concomitant]
     Route: 049
  6. TRANXENE [Concomitant]
     Route: 049
  7. DOMINAL [Concomitant]
     Route: 049
  8. ZOLPIDEM TARTRATE [Concomitant]
     Route: 049

REACTIONS (7)
  - ABDOMINAL ADHESIONS [None]
  - C-REACTIVE PROTEIN INCREASED [None]
  - ESCHERICHIA INFECTION [None]
  - GASTROINTESTINAL OBSTRUCTION [None]
  - INTESTINAL DILATATION [None]
  - POST PROCEDURAL COMPLICATION [None]
  - PYREXIA [None]
